FAERS Safety Report 5428394-9 (Version None)
Quarter: 2007Q3

REPORT INFORMATION
  Report Type: 
  Country: None (occurrence: None)
  Receive Date: 20070823
  Receipt Date: 20070809
  Transmission Date: 20080115
  Serious: Yes (Hospitalization)
  Sender: FDA-Public Use
  Company Number: CLOF-10605

PATIENT
  Age: 71 Year
  Sex: Female

DRUGS (8)
  1. CLOFARABINE. MFR: GENZYME [Suspect]
     Indication: ACUTE MYELOID LEUKAEMIA
     Dosage: 30 MG/M2 QD IV
     Route: 042
     Dates: start: 20070517, end: 20070523
  2. CLOFARABINE. MFR: GENZYME [Suspect]
     Indication: ACUTE MYELOID LEUKAEMIA
     Dates: start: 20070709, end: 20070712
  3. BENAZEPRIL HYDROCHLORIDE [Concomitant]
  4. MECLIZINE [Concomitant]
  5. LOVASTATIN [Concomitant]
  6. RANITIDINE [Concomitant]
  7. MEGACE [Concomitant]
  8. ZANTAC 150 [Concomitant]

REACTIONS (10)
  - BLOOD CREATININE INCREASED [None]
  - BLOOD MAGNESIUM DECREASED [None]
  - BLOOD POTASSIUM DECREASED [None]
  - BLOOD SODIUM DECREASED [None]
  - BLOOD UREA INCREASED [None]
  - CHOLELITHIASIS [None]
  - DIARRHOEA [None]
  - GLOMERULAR FILTRATION RATE DECREASED [None]
  - PANCREATITIS ACUTE [None]
  - RENAL DISORDER [None]
